FAERS Safety Report 10503680 (Version 1)
Quarter: 2014Q4

REPORT INFORMATION
  Report Type: Report from Study
  Country: US (occurrence: US)
  Receive Date: 20141008
  Receipt Date: 20141008
  Transmission Date: 20150528
  Serious: Yes (Hospitalization, Other)
  Sender: FDA-Public Use
  Company Number: US-AMGEN-USASL2014076349

PATIENT
  Age: 72 Year
  Sex: Female

DRUGS (1)
  1. ENBREL [Suspect]
     Active Substance: ETANERCEPT
     Indication: RHEUMATOID ARTHRITIS
     Dosage: 50 MG, QWK
     Route: 058

REACTIONS (6)
  - Weight decreased [Unknown]
  - Anaphylactic reaction [Unknown]
  - Breast disorder [Unknown]
  - Lymphadenopathy [Unknown]
  - Lung infection [Unknown]
  - Tooth abscess [Unknown]

NARRATIVE: CASE EVENT DATE: 201401
